FAERS Safety Report 5279123-3 (Version None)
Quarter: 2007Q1

REPORT INFORMATION
  Report Type: 
  Country: None (occurrence: None)
  Receive Date: 20070327
  Receipt Date: 20070327
  Transmission Date: 20070707
  Serious: Yes (Hospitalization)
  Sender: FDA-Public Use
  Company Number: None

PATIENT
  Sex: Female
  Weight: 68.9467 kg

DRUGS (4)
  1. OXALIPLATIN [Suspect]
     Indication: BLADDER CANCER
     Dosage: 110 MG/M2  Q 21 DAYS   IV DRIP
     Route: 041
     Dates: start: 20070306, end: 20070306
  2. OXALIPLATIN [Suspect]
     Indication: METASTASIS
     Dosage: 110 MG/M2  Q 21 DAYS   IV DRIP
     Route: 041
     Dates: start: 20070306, end: 20070306
  3. DOCETAXOL [Suspect]
     Indication: BLADDER CANCER
     Dosage: 48 MG/M2   Q 21 DAYS  IV DRIP
     Route: 041
     Dates: start: 20070306, end: 20070306
  4. DOCETAXOL [Suspect]
     Indication: METASTASIS
     Dosage: 48 MG/M2   Q 21 DAYS  IV DRIP
     Route: 041
     Dates: start: 20070306, end: 20070306

REACTIONS (6)
  - ANAEMIA [None]
  - DIARRHOEA [None]
  - HYPOKALAEMIA [None]
  - HYPONATRAEMIA [None]
  - NAUSEA [None]
  - VOMITING [None]
